FAERS Safety Report 8932747 (Version 1)
Quarter: 2012Q4

REPORT INFORMATION
  Report Type: 
  Country: CN (occurrence: CN)
  Receive Date: 20121129
  Receipt Date: 20121129
  Transmission Date: 20130627
  Serious: Yes (Hospitalization)
  Sender: FDA-Public Use
  Company Number: CN-JNJFOC-20121111500

PATIENT
  Age: 4 Year
  Sex: Male

DRUGS (2)
  1. MOTRIN [Suspect]
     Route: 048
  2. MOTRIN [Suspect]
     Indication: PYREXIA
     Route: 048
     Dates: start: 20120828, end: 20120828

REACTIONS (10)
  - Drug-induced liver injury [Recovering/Resolving]
  - Drug-induced liver injury [Recovering/Resolving]
  - Hepatic function abnormal [Recovering/Resolving]
  - Dizziness [None]
  - Cough [None]
  - Gallbladder disorder [None]
  - Cholecystitis [None]
  - Jaundice cholestatic [None]
  - Cholangitis [None]
  - Product quality issue [None]
